FAERS Safety Report 14465623 (Version 2)
Quarter: 2018Q1

REPORT INFORMATION
  Report Type: Spontaneous
  Country: US (occurrence: US)
  Receive Date: 20180131
  Receipt Date: 20180216
  Transmission Date: 20180509
  Serious: Yes (Death, Hospitalization, Other)
  Sender: FDA-Public Use
  Company Number: US-VISTAPHARM, INC.-VER201801-000241

PATIENT
  Age: 23 Year
  Sex: Male

DRUGS (2)
  1. ALPRAZOLAM. [Suspect]
     Active Substance: ALPRAZOLAM
     Indication: PRODUCT USED FOR UNKNOWN INDICATION
     Route: 045
  2. METHADONE [Suspect]
     Active Substance: METHADONE HYDROCHLORIDE
     Indication: PRODUCT USED FOR UNKNOWN INDICATION
     Route: 048

REACTIONS (7)
  - Central nervous system necrosis [Fatal]
  - Multiple organ dysfunction syndrome [Fatal]
  - Substance abuse [Unknown]
  - Toxicity to various agents [Fatal]
  - Acute kidney injury [Not Recovered/Not Resolved]
  - Brain injury [Fatal]
  - Rhabdomyolysis [Not Recovered/Not Resolved]
